FAERS Safety Report 9671596 (Version 2)
Quarter: 2013Q4

REPORT INFORMATION
  Report Type: Spontaneous
  Country: AU (occurrence: None)
  Receive Date: 20131104
  Receipt Date: 20131125
  Transmission Date: 20140711
  Serious: Yes (Life-Threatening)
  Sender: FDA-Public Use
  Company Number: AT-013430

PATIENT
  Age: 66 Year
  Sex: Female

DRUGS (3)
  1. PICOPREP (PICOPREP) (NOT SPECIFIED) [Suspect]
     Indication: BOWEL PREPARATION
     Route: 048
     Dates: start: 20130922, end: 20130922
  2. EUTHYROX [Concomitant]
  3. CALCIUM WITH VITAMIN D3 [Suspect]

REACTIONS (9)
  - Hyponatraemia [None]
  - Coma [None]
  - Cerebral infarction [None]
  - Iron deficiency [None]
  - Gamma-glutamyltransferase increased [None]
  - Blood glucose increased [None]
  - Glucose urine present [None]
  - Haemoglobin decreased [None]
  - Disturbance in attention [None]
